FAERS Safety Report 4449442-9 (Version None)
Quarter: 2004Q3

REPORT INFORMATION
  Report Type: 
  Country: None (occurrence: None)
  Receive Date: 20040909
  Receipt Date: 20040819
  Transmission Date: 20050211
  Serious: Yes (Hospitalization, Disabling)
  Sender: FDA-Public Use
  Company Number: A03200402825

PATIENT
  Age: 73 Year
  Sex: Female
  Weight: 88.4514 kg

DRUGS (3)
  1. PLAVIX [Suspect]
     Indication: CORONARY ARTERY OCCLUSION
     Dosage: 75 MG QD - ORAL
     Route: 048
     Dates: start: 20040401, end: 20040801
  2. PRAVASTATIN SODIUM [Concomitant]
  3. ACETYLSALICYLIC ACID [Concomitant]

REACTIONS (8)
  - FALL [None]
  - HAEMOGLOBIN DECREASED [None]
  - LOSS OF CONSCIOUSNESS [None]
  - NECK PAIN [None]
  - PAIN [None]
  - RECTAL HAEMORRHAGE [None]
  - SPINAL COMPRESSION FRACTURE [None]
  - SYNCOPE [None]
